APPROVED DRUG PRODUCT: METOCLOPRAMIDE HYDROCHLORIDE
Active Ingredient: METOCLOPRAMIDE HYDROCHLORIDE
Strength: EQ 5MG BASE
Dosage Form/Route: TABLET;ORAL
Application: A072436 | Product #001
Applicant: SANDOZ INC
Approved: Jun 22, 1989 | RLD: No | RS: No | Type: DISCN